FAERS Safety Report 21224053 (Version 1)
Quarter: 2022Q3

REPORT INFORMATION
  Report Type: Spontaneous
  Country: US (occurrence: US)
  Receive Date: 20220817
  Receipt Date: 20220817
  Transmission Date: 20221027
  Serious: No
  Sender: FDA-Public Use
  Company Number: US-SA-2021MK000093

PATIENT
  Age: 35 Year
  Sex: Male

DRUGS (7)
  1. AFREZZA [Suspect]
     Active Substance: INSULIN HUMAN
     Indication: Diabetes mellitus
     Dates: start: 2019
  2. AFREZZA [Suspect]
     Active Substance: INSULIN HUMAN
     Dates: start: 2019
  3. AFREZZA [Suspect]
     Active Substance: INSULIN HUMAN
     Dates: start: 2019
  4. AFREZZA [Suspect]
     Active Substance: INSULIN HUMAN
     Dates: start: 2019
  5. TOUJEO [Concomitant]
     Active Substance: INSULIN GLARGINE
     Indication: Diabetes mellitus
  6. OXYCONTIN [Concomitant]
     Active Substance: OXYCODONE HYDROCHLORIDE
     Indication: Product used for unknown indication
  7. GABAPENTIN [Concomitant]
     Active Substance: GABAPENTIN
     Indication: Product used for unknown indication

REACTIONS (2)
  - Drug ineffective [Unknown]
  - Product storage error [Unknown]
